FAERS Safety Report 14029618 (Version 1)
Quarter: 2017Q4

REPORT INFORMATION
  Report Type: Spontaneous
  Country: US (occurrence: US)
  Receive Date: 20171002
  Receipt Date: 20171002
  Transmission Date: 20180321
  Serious: No
  Sender: FDA-Public Use
  Company Number: US-JAZZ-2017-US-011436

PATIENT
  Age: 30 Year
  Sex: Male

DRUGS (15)
  1. XYREM [Suspect]
     Active Substance: SODIUM OXYBATE
     Dosage: DOSE ADJUSTMENT
     Route: 048
     Dates: start: 201503, end: 201607
  2. XYREM [Suspect]
     Active Substance: SODIUM OXYBATE
     Dosage: 4.5G, BID
     Route: 048
     Dates: start: 201607
  3. FLONASE                            /00908302/ [Concomitant]
     Active Substance: MOMETASONE FUROATE
  4. ADDERALL [Concomitant]
     Active Substance: AMPHETAMINE ASPARTATE\AMPHETAMINE SULFATE\DEXTROAMPHETAMINE SACCHARATE\DEXTROAMPHETAMINE SULFATE
  5. WELLBUTRIN [Concomitant]
     Active Substance: BUPROPION HYDROCHLORIDE
  6. IBUPROFEN. [Concomitant]
     Active Substance: IBUPROFEN
  7. VITAMIN C [Concomitant]
     Active Substance: ASCORBIC ACID
  8. XYREM [Suspect]
     Active Substance: SODIUM OXYBATE
     Indication: NARCOLEPSY
     Dosage: 2.25G, BID
     Route: 048
     Dates: start: 201502, end: 201503
  9. CREATINE MONOHYDRATE [Concomitant]
     Active Substance: CREATINE MONOHYDRATE
  10. TIZANIDINE HCL [Concomitant]
     Active Substance: TIZANIDINE HYDROCHLORIDE
  11. FISH OIL [Concomitant]
     Active Substance: FISH OIL
  12. CLARITIN [Concomitant]
     Active Substance: LORATADINE
  13. ARGININE HCL                       /00126101/ [Concomitant]
  14. PROVIGIL [Concomitant]
     Active Substance: MODAFINIL
  15. PREDNISONE. [Concomitant]
     Active Substance: PREDNISONE

REACTIONS (2)
  - Headache [Unknown]
  - Somnolence [Unknown]

NARRATIVE: CASE EVENT DATE: 20170728
